FAERS Safety Report 22152768 (Version 1)
Quarter: 2023Q1

REPORT INFORMATION
  Report Type: Spontaneous
  Country: CN (occurrence: None)
  Receive Date: 20230329
  Receipt Date: 20230329
  Transmission Date: 20230418
  Serious: Yes (Other)
  Sender: FDA-Public Use
  Company Number: 2023A069992

PATIENT
  Age: 26654 Day
  Sex: Male
  Weight: 59 kg

DRUGS (3)
  1. PULMICORT RESPULES [Suspect]
     Active Substance: BUDESONIDE
     Indication: Chronic obstructive pulmonary disease
     Route: 055
     Dates: start: 20230308, end: 20230308
  2. PULMICORT RESPULES [Suspect]
     Active Substance: BUDESONIDE
     Indication: Lower respiratory tract infection
     Route: 055
     Dates: start: 20230308, end: 20230308
  3. FUROSEMIDE [Concomitant]
     Active Substance: FUROSEMIDE
     Route: 040

REACTIONS (1)
  - Left ventricular failure [Recovering/Resolving]

NARRATIVE: CASE EVENT DATE: 20230308
